FAERS Safety Report 13779466 (Version 4)
Quarter: 2017Q3

REPORT INFORMATION
  Report Type: Report from Study
  Country: None (occurrence: JP)
  Receive Date: 20170721
  Receipt Date: 20170929
  Transmission Date: 20171127
  Serious: Yes (Hospitalization)
  Sender: FDA-Public Use
  Company Number: JP-ABBVIE-17P-087-2045368-00

PATIENT
  Age: 55 Year
  Sex: Male
  Weight: 84 kg

DRUGS (4)
  1. OLMESARTAN MEDOXOMIL. [Concomitant]
     Active Substance: OLMESARTAN MEDOXOMIL
     Indication: HYPERTENSION
     Route: 048
  2. VIEKIRAX [Suspect]
     Active Substance: OMBITASVIR\PARITAPREVIR\RITONAVIR
     Indication: CHRONIC HEPATITIS C
     Route: 048
     Dates: start: 20170706, end: 20170717
  3. FEBUXOSTAT. [Concomitant]
     Active Substance: FEBUXOSTAT
     Indication: GOUT
  4. REBETOL [Suspect]
     Active Substance: RIBAVIRIN
     Indication: CHRONIC HEPATITIS C
     Route: 048
     Dates: start: 20170706, end: 20170717

REACTIONS (14)
  - Hypertension [Unknown]
  - Chromaturia [Unknown]
  - Gout [Unknown]
  - Chills [Unknown]
  - Peripheral swelling [Unknown]
  - Malaise [Unknown]
  - Decreased appetite [Unknown]
  - Pruritus [Unknown]
  - Lymphadenopathy [Unknown]
  - Hyperglycaemia [Unknown]
  - Pyrexia [Unknown]
  - Insomnia [Unknown]
  - Eye swelling [Unknown]
  - Skin ulcer [Unknown]

NARRATIVE: CASE EVENT DATE: 201707
